FAERS Safety Report 17609166 (Version 1)
Quarter: 2020Q2

REPORT INFORMATION
  Report Type: Spontaneous
  Country: IT (occurrence: IT)
  Receive Date: 20200401
  Receipt Date: 20200401
  Transmission Date: 20200713
  Serious: Yes (Other)
  Sender: FDA-Public Use
  Company Number: IT-TEVA-2020-IT-1213766

PATIENT
  Age: 50 Year
  Sex: Female
  Weight: 77 kg

DRUGS (3)
  1. CYCLOPHOSPHAMIDE. [Suspect]
     Active Substance: CYCLOPHOSPHAMIDE
     Indication: BREAST CANCER
     Dosage: 1080 MG
     Route: 042
     Dates: start: 20191107, end: 20200109
  2. LOBIVON 5 MG COMPRESSE [Concomitant]
     Active Substance: NEBIVOLOL HYDROCHLORIDE
     Dosage: 2.5 MG
     Route: 048
     Dates: end: 20200130
  3. EPIRUBICIN HYDROCHLORIDE. [Suspect]
     Active Substance: EPIRUBICIN HYDROCHLORIDE
     Indication: BREAST CANCER
     Dosage: 162 MG
     Route: 042
     Dates: start: 20191107, end: 20200109

REACTIONS (1)
  - Ventricular dysfunction [Unknown]

NARRATIVE: CASE EVENT DATE: 20200130
